FAERS Safety Report 9238908 (Version 1)
Quarter: 2013Q1

REPORT INFORMATION
  Report Type: Spontaneous
  Country: US (occurrence: None)
  Receive Date: 20121102
  Receipt Date: 20121102
  Transmission Date: 20140127
  Serious: Yes (Life-Threatening, Hospitalization)
  Sender: FDA-Public Use
  Company Number: 125346

PATIENT
  Age: 62 Year
  Sex: Male
  Weight: 107 kg

DRUGS (7)
  1. LEUCOVORIN CALCIUM [Suspect]
     Indication: COLORECTAL CANCER METASTATIC
     Route: 042
     Dates: start: 20110928
  2. FENTANYL [Concomitant]
  3. HYDROCODONE [Concomitant]
  4. ALTROPINE SULFATE [Concomitant]
  5. DIPHENOXYLATE HYDROCHLORIDE [Concomitant]
  6. PROMETHAZINE [Concomitant]
  7. ONDANSETRON HYDROCHLORIDE [Concomitant]

REACTIONS (3)
  - Renal failure [None]
  - Diarrhoea [None]
  - Vomiting [None]
